FAERS Safety Report 10702709 (Version 2)
Quarter: 2015Q1

REPORT INFORMATION
  Report Type: Report from Study
  Country: CN (occurrence: CN)
  Receive Date: 20150109
  Receipt Date: 20150109
  Transmission Date: 20150721
  Serious: Yes (Hospitalization, Other)
  Sender: FDA-Public Use
  Company Number: CN-BRISTOL-MYERS SQUIBB COMPANY-21671938

PATIENT
  Age: 53 Year
  Sex: Female

DRUGS (5)
  1. COZAAR [Concomitant]
     Active Substance: LOSARTAN POTASSIUM
  2. GLUCOBAY [Concomitant]
     Active Substance: ACARBOSE
  3. LESCOL [Concomitant]
     Active Substance: FLUVASTATIN SODIUM
     Indication: ARTERIOSCLEROSIS
  4. EXENATIDE [Suspect]
     Active Substance: EXENATIDE
     Indication: TYPE 2 DIABETES MELLITUS
     Dosage: 10 ?G, BID
     Route: 058
     Dates: start: 201406
  5. METFORMIN [Concomitant]
     Active Substance: METFORMIN HYDROCHLORIDE

REACTIONS (6)
  - Weight abnormal [Unknown]
  - Left atrial dilatation [Unknown]
  - Visual impairment [Unknown]
  - Hypertension [Recovered/Resolved]
  - Blood glucose increased [Unknown]
  - Carotid arteriosclerosis [Unknown]

NARRATIVE: CASE EVENT DATE: 201406
